FAERS Safety Report 24612376 (Version 1)
Quarter: 2024Q4

REPORT INFORMATION
  Report Type: Spontaneous
  Country: CA (occurrence: CA)
  Receive Date: 20241113
  Receipt Date: 20241113
  Transmission Date: 20250115
  Serious: Yes (Life-Threatening, Hospitalization, Other)
  Sender: STRIDES
  Company Number: CA-STRIDES ARCOLAB LIMITED-2024SP014567

PATIENT
  Age: 7 Month
  Sex: Female

DRUGS (15)
  1. PREDNISOLONE [Suspect]
     Active Substance: PREDNISOLONE
     Indication: Lymphangioma
     Dosage: 1 MILLIGRAM/KILOGRAM, QD
     Route: 048
  2. PREDNISOLONE [Suspect]
     Active Substance: PREDNISOLONE
     Dosage: UNK
     Route: 042
  3. DOXYCYCLINE [Suspect]
     Active Substance: DOXYCYCLINE
     Indication: Pleural effusion
     Dosage: UNK (PLEURODESIS WITH DOXYCYCLINE )
     Route: 065
  4. SIROLIMUS [Suspect]
     Active Substance: SIROLIMUS
     Indication: Lymphangioma
     Dosage: 0.8 MILLIGRAM/SQ. METER, BID
     Route: 048
  5. SIROLIMUS [Suspect]
     Active Substance: SIROLIMUS
     Indication: Pleural effusion
     Dosage: 1.5 MILLIGRAM/SQ. METER, BID
     Route: 048
  6. SIROLIMUS [Suspect]
     Active Substance: SIROLIMUS
     Dosage: 2 MILLIGRAM/SQ. METER, BID
     Route: 048
  7. SIROLIMUS [Suspect]
     Active Substance: SIROLIMUS
     Dosage: UNK (INCREASED DOSE)
     Route: 048
  8. VINCRISTINE [Suspect]
     Active Substance: VINCRISTINE
     Indication: Lymphangioma
     Dosage: 0.05 MILLIGRAM/KILOGRAM WEEKLY
     Route: 042
  9. PROPRANOLOL [Suspect]
     Active Substance: PROPRANOLOL HYDROCHLORIDE
     Indication: Lymphangioma
     Dosage: 1 MILLIGRAM/KILOGRAM, QD
     Route: 048
  10. INTERFERON [Suspect]
     Active Substance: INTERFERON
     Indication: Lymphangioma
     Dosage: UNK
     Route: 042
  11. BLEOMYCIN [Suspect]
     Active Substance: BLEOMYCIN SULFATE
     Indication: Pleural effusion
     Dosage: UNK (SCLEROTHERAPY WITH BLEOMYCIN)
     Route: 065
  12. BLEOMYCIN [Suspect]
     Active Substance: BLEOMYCIN SULFATE
     Dosage: UNK (SCLEROTHERAPY WITH BLEOMYCIN)
     Route: 065
  13. TRAMETINIB [Suspect]
     Active Substance: TRAMETINIB
     Indication: Lymphangioma
     Dosage: 0.025 MILLIGRAM/KILOGRAM, QD
     Route: 065
  14. TRAMETINIB [Suspect]
     Active Substance: TRAMETINIB
     Indication: Pleural effusion
     Dosage: 0.025 MILLIGRAM/KILOGRAM, QD
     Route: 065
  15. OCTREOTIDE [Suspect]
     Active Substance: OCTREOTIDE
     Indication: Pleural effusion
     Dosage: UNK (PERFUSIONS)
     Route: 065

REACTIONS (10)
  - Adrenal suppression [Recovered/Resolved]
  - Cataract subcapsular [Recovered/Resolved]
  - Drug ineffective [Unknown]
  - Malignant neoplasm progression [Unknown]
  - Osteoporosis [Recovered/Resolved]
  - Cushingoid [Recovered/Resolved]
  - Hypertension [Recovered/Resolved]
  - Infection [Recovered/Resolved]
  - Cytomegalovirus infection [Recovered/Resolved]
  - Off label use [Unknown]
